FAERS Safety Report 4553466-0 (Version None)
Quarter: 2005Q1

REPORT INFORMATION
  Report Type: 
  Country: None (occurrence: None)
  Receive Date: 20050112
  Receipt Date: 20050104
  Transmission Date: 20050727
  Serious: Yes (Death, Life-Threatening, Hospitalization)
  Sender: FDA-Public Use
  Company Number: 2005-01-0030

PATIENT
  Age: 84 Year
  Sex: Female

DRUGS (5)
  1. CELESTENE                    (BETAMETHASONE SODIUM PHOSPHATE) [Suspect]
     Indication: BRONCHITIS
     Dosage: INHALATION
     Route: 055
     Dates: start: 20041201
  2. METROMICINE                 (NETILMICIN SULFATE) INJECTABLE [Suspect]
     Indication: BRONCHITIS
     Dates: start: 20041201
  3. SURBRONC [Suspect]
     Indication: BRONCHITIS
     Dosage: INHALATION
     Route: 055
     Dates: start: 20041201
  4. CIPROFLOXACIN HCL [Suspect]
     Indication: BRONCHITIS
     Dosage: ORAL
     Route: 048
     Dates: start: 20041201
  5. LOVENOX [Suspect]
     Indication: BRONCHITIS
     Dosage: SUBCUTANEOUS
     Route: 058
     Dates: start: 20041201

REACTIONS (4)
  - MULTI-ORGAN FAILURE [None]
  - RESPIRATORY DISTRESS [None]
  - STAPHYLOCOCCAL SEPSIS [None]
  - TOXIC EPIDERMAL NECROLYSIS [None]
